FAERS Safety Report 8288342-3 (Version None)
Quarter: 2012Q2

REPORT INFORMATION
  Report Type: 
  Country: None (occurrence: None)
  Receive Date: 20120416
  Receipt Date: 20120413
  Transmission Date: 20120825
  Serious: Yes (Other)
  Sender: FDA-Public Use
  Company Number: US-PFIZER INC-2012092896

PATIENT
  Sex: Female
  Weight: 71 kg

DRUGS (3)
  1. CHANTIX [Suspect]
     Indication: SMOKING CESSATION THERAPY
     Dosage: 0.5 MG, 1X/DAY
     Route: 048
     Dates: start: 20080101, end: 20080101
  2. PROZAC [Concomitant]
     Indication: DEPRESSION
     Dosage: UNK
  3. CLONAZEPAM [Concomitant]
     Indication: DEPRESSION
     Dosage: UNK

REACTIONS (3)
  - BLOOD TRIGLYCERIDES INCREASED [None]
  - ANAEMIA [None]
  - BLOOD CHOLESTEROL INCREASED [None]
